FAERS Safety Report 25523199 (Version 2)
Quarter: 2025Q3

REPORT INFORMATION
  Report Type: Report from Study
  Country: US (occurrence: US)
  Receive Date: 20250707
  Receipt Date: 20250729
  Transmission Date: 20251021
  Serious: Yes (Hospitalization, Other)
  Sender: TAKEDA
  Company Number: US-TAKEDA-2024TUS001153

PATIENT
  Sex: Male
  Weight: 112 kg

DRUGS (32)
  1. HUMAN IMMUNOGLOBULIN G [Suspect]
     Active Substance: HUMAN IMMUNOGLOBULIN G
     Indication: IgG deficiency
     Dosage: 60 GRAM, Q4WEEKS
  2. EPINEPHRINE [Concomitant]
     Active Substance: EPINEPHRINE
  3. ACETAMINOPHEN [Concomitant]
     Active Substance: ACETAMINOPHEN
  4. VITAMIN C [Concomitant]
     Active Substance: ASCORBIC ACID
  5. TAMSULOSIN HYDROCHLORIDE [Concomitant]
     Active Substance: TAMSULOSIN HYDROCHLORIDE
  6. ROSUVASTATIN CALCIUM [Concomitant]
     Active Substance: ROSUVASTATIN CALCIUM
  7. POTASSIUM CHLORIDE [Concomitant]
     Active Substance: POTASSIUM CHLORIDE
  8. SODIUM CHLORIDE [Concomitant]
     Active Substance: SODIUM CHLORIDE
  9. Coq [Concomitant]
  10. MELATONIN [Concomitant]
     Active Substance: MELATONIN
  11. LOSARTAN POTASSIUM [Concomitant]
     Active Substance: LOSARTAN POTASSIUM
  12. TYLENOL PM EXTRA STRENGTH [Concomitant]
     Active Substance: ACETAMINOPHEN\DIPHENHYDRAMINE HYDROCHLORIDE
  13. FLONASE ALLERGY RELIEF [Concomitant]
     Active Substance: FLUTICASONE PROPIONATE
  14. FLUTICASONE PROPIONATE\SALMETEROL XINAFOATE [Concomitant]
     Active Substance: FLUTICASONE PROPIONATE\SALMETEROL XINAFOATE
  15. VITAMIN D3 [Concomitant]
     Active Substance: CHOLECALCIFEROL
  16. ALBUTEROL SULFATE [Concomitant]
     Active Substance: ALBUTEROL SULFATE
  17. LIDOCAINE [Concomitant]
     Active Substance: LIDOCAINE
  18. METOPROLOL SUCCINATE [Concomitant]
     Active Substance: METOPROLOL SUCCINATE
  19. OXYGEN [Concomitant]
     Active Substance: OXYGEN
  20. ZINC [Concomitant]
     Active Substance: ZINC
  21. MONTELUKAST SODIUM [Concomitant]
     Active Substance: MONTELUKAST SODIUM
  22. CHLORTHALIDONE [Concomitant]
     Active Substance: CHLORTHALIDONE
  23. DIPHENHYDRAMINE HYDROCHLORIDE [Concomitant]
     Active Substance: DIPHENHYDRAMINE HYDROCHLORIDE
  24. FUROSEMIDE [Concomitant]
     Active Substance: FUROSEMIDE
  25. ASPIRIN [Concomitant]
     Active Substance: ASPIRIN
  26. ZYRTEC [Concomitant]
     Active Substance: CETIRIZINE HYDROCHLORIDE
  27. SYNTHROID [Concomitant]
     Active Substance: LEVOTHYROXINE SODIUM
  28. OMEPRAZOLE [Concomitant]
     Active Substance: OMEPRAZOLE
  29. AMLODIPINE BESYLATE [Concomitant]
     Active Substance: AMLODIPINE BESYLATE
  30. AUGMENTIN [Concomitant]
     Active Substance: AMOXICILLIN\CLAVULANATE POTASSIUM
  31. ONDANSETRON HYDROCHLORIDE [Concomitant]
     Active Substance: ONDANSETRON HYDROCHLORIDE
  32. PROCARDIA [Concomitant]
     Active Substance: NIFEDIPINE

REACTIONS (15)
  - Fall [Unknown]
  - Headache [Unknown]
  - Loss of consciousness [Unknown]
  - Facial pain [Unknown]
  - Acute sinusitis [Unknown]
  - Infusion related reaction [Recovered/Resolved]
  - Fear of injection [Recovered/Resolved]
  - Dry mouth [Unknown]
  - Weight abnormal [Unknown]
  - Drug ineffective [Unknown]
  - Hypertension [Recovered/Resolved]
  - Vomiting [Recovered/Resolved]
  - Abdominal pain [Unknown]
  - Nausea [Recovered/Resolved]
  - Headache [Unknown]
